FAERS Safety Report 11951365 (Version 1)
Quarter: 2016Q1

REPORT INFORMATION
  Report Type: Spontaneous
  Country: US (occurrence: None)
  Receive Date: 20160122
  Receipt Date: 20160122
  Transmission Date: 20160526
  Serious: No
  Sender: FDA-Public Use
  Company Number: None

PATIENT
  Age: 68 Year
  Sex: Female

DRUGS (9)
  1. ONDANSETRON [Concomitant]
     Active Substance: ONDANSETRON
  2. CARISOPRODOL. [Concomitant]
     Active Substance: CARISOPRODOL
  3. CEPHALEXIN. [Concomitant]
     Active Substance: CEPHALEXIN
  4. SYNTHROID [Concomitant]
     Active Substance: LEVOTHYROXINE SODIUM
  5. IBRANCE [Suspect]
     Active Substance: PALBOCICLIB
     Indication: BREAST CANCER
     Dosage: 125MG QD FOR 21DS ORAL
     Route: 048
     Dates: start: 20151231
  6. BACLOFEN. [Concomitant]
     Active Substance: BACLOFEN
  7. FASLODEX [Concomitant]
     Active Substance: FULVESTRANT
  8. GRANISETRON [Concomitant]
     Active Substance: GRANISETRON
  9. MEGESTROL AC [Concomitant]

REACTIONS (13)
  - Myalgia [None]
  - Oral herpes [None]
  - Insomnia [None]
  - Fatigue [None]
  - Back pain [None]
  - Dyspnoea [None]
  - Thyroid disorder [None]
  - Headache [None]
  - Bone pain [None]
  - Decreased appetite [None]
  - Neuropathy peripheral [None]
  - Increased upper airway secretion [None]
  - Hepatic enzyme increased [None]

NARRATIVE: CASE EVENT DATE: 20160108
